FAERS Safety Report 17056418 (Version 1)
Quarter: 2019Q4

REPORT INFORMATION
  Report Type: Spontaneous
  Country: US (occurrence: US)
  Receive Date: 20191121
  Receipt Date: 20191121
  Transmission Date: 20200122
  Serious: Yes (Other)
  Sender: FDA-Public Use
  Company Number: US-ROCHE-2472822

PATIENT
  Age: 31 Year
  Sex: Female
  Weight: 54.48 kg

DRUGS (2)
  1. LEVOTHYROXINE. [Concomitant]
     Active Substance: LEVOTHYROXINE
     Route: 048
  2. OCREVUS [Suspect]
     Active Substance: OCRELIZUMAB
     Indication: MULTIPLE SCLEROSIS
     Route: 042
     Dates: start: 201811

REACTIONS (9)
  - Abortion spontaneous [Unknown]
  - Sensory loss [Not Recovered/Not Resolved]
  - Maternal exposure during pregnancy [Unknown]
  - Gait disturbance [Not Recovered/Not Resolved]
  - Mental impairment [Unknown]
  - Vomiting [Recovered/Resolved]
  - Memory impairment [Not Recovered/Not Resolved]
  - Magnetic resonance imaging abnormal [Not Recovered/Not Resolved]
  - Headache [Not Recovered/Not Resolved]

NARRATIVE: CASE EVENT DATE: 201811
